FAERS Safety Report 6254107-7 (Version None)
Quarter: 2009Q2

REPORT INFORMATION
  Report Type: 
  Country: None (occurrence: None)
  Receive Date: 20090630
  Receipt Date: 20090630
  Transmission Date: 20091009
  Serious: Yes (Hospitalization)
  Sender: FDA-Public Use
  Company Number: None

PATIENT
  Age: 68 Year
  Sex: Male
  Weight: 81.6 kg

DRUGS (1)
  1. ADENOSINE [Suspect]
     Indication: SURGERY
     Dates: start: 20090619, end: 20090619

REACTIONS (4)
  - BRONCHOSPASM [None]
  - INFUSION RELATED REACTION [None]
  - SINUS TACHYCARDIA [None]
  - VENTRICULAR FIBRILLATION [None]
